FAERS Safety Report 21054788 (Version 4)
Quarter: 2023Q2

REPORT INFORMATION
  Report Type: Spontaneous
  Country: US (occurrence: US)
  Receive Date: 20220707
  Receipt Date: 20230512
  Transmission Date: 20230721
  Serious: Yes (Other)
  Sender: FDA-Public Use
  Company Number: US-PFIZER INC-202200921007

PATIENT
  Age: 69 Year
  Sex: Female
  Weight: 74.83 kg

DRUGS (7)
  1. IBRANCE [Suspect]
     Active Substance: PALBOCICLIB
     Indication: Breast cancer female
     Dosage: 125 MG, CYCLIC (ONCE DAY, TABLET FOR 21 DAYS)
     Dates: start: 20220610
  2. IBRANCE [Suspect]
     Active Substance: PALBOCICLIB
     Dosage: 100 MG, CYCLIC (100MG ONCE A DAY BY MOUTH FOR 21 DAYS THEN ONE WEEK OFF)
     Route: 048
     Dates: start: 20220720, end: 202208
  3. IBRANCE [Suspect]
     Active Substance: PALBOCICLIB
     Dosage: 75 MG
  4. DOXYCYCLINE [Concomitant]
     Active Substance: DOXYCYCLINE
     Indication: Rosacea
     Dosage: 50 MG
  5. VITAMIN D3 [Concomitant]
     Active Substance: CHOLECALCIFEROL
     Dosage: UNK
  6. DIETARY SUPPLEMENT [Concomitant]
     Active Substance: DIETARY SUPPLEMENT
     Dosage: UNK
  7. ANASTROZOLE [Concomitant]
     Active Substance: ANASTROZOLE

REACTIONS (7)
  - White blood cell count decreased [Not Recovered/Not Resolved]
  - Discomfort [Recovering/Resolving]
  - Epistaxis [Not Recovered/Not Resolved]
  - Flatulence [Unknown]
  - Nausea [Recovered/Resolved]
  - Brain fog [Unknown]
  - Abdominal pain upper [Unknown]

NARRATIVE: CASE EVENT DATE: 20220601
